FAERS Safety Report 10062547 (Version 1)
Quarter: 2014Q2

REPORT INFORMATION
  Report Type: Spontaneous
  Country: JP (occurrence: JP)
  Receive Date: 20140407
  Receipt Date: 20140407
  Transmission Date: 20141212
  Serious: Yes (Other)
  Sender: FDA-Public Use
  Company Number: JP-TEVA-473165ISR

PATIENT
  Age: 68 Year
  Sex: Male

DRUGS (8)
  1. PREDNISOLONE [Suspect]
     Indication: POLYCHONDRITIS
     Dosage: 30 MG/DAY, GRADUALLY TAPERED TO 10 MG/DAY
     Route: 048
  2. PREDNISOLONE [Suspect]
     Indication: POLYCHONDRITIS
     Dosage: 10 MG/DAY, SLOWLY DECREASED TO 5 MG/DAY
     Route: 048
  3. PREDNISOLONE [Suspect]
     Indication: POLYCHONDRITIS
     Dosage: 5 MG/DAY
     Route: 048
  4. ADALIMUMAB [Suspect]
     Indication: POLYCHONDRITIS
     Dosage: 40 MG, LATER 3 TIMES APPROXIMATELY EVERY 2 WEEKS
     Route: 065
  5. TACROLIMUS [Suspect]
     Indication: POLYCHONDRITIS
     Dosage: 1 MILLIGRAM DAILY;
     Route: 065
  6. CLARITHROMYCIN [Suspect]
     Dosage: 800 MILLIGRAM DAILY;
     Route: 048
  7. RIFAMPICIN [Suspect]
     Dosage: 450 MILLIGRAM DAILY;
     Route: 048
  8. ETHAMBUTOL [Suspect]
     Dosage: 750 MILLIGRAM DAILY;
     Route: 048

REACTIONS (5)
  - Mycobacterial infection [Recovering/Resolving]
  - Lung infection [Recovering/Resolving]
  - Mycobacterium avium complex infection [Recovering/Resolving]
  - Paradoxical drug reaction [Recovering/Resolving]
  - Immune reconstitution inflammatory syndrome [Recovering/Resolving]
